FAERS Safety Report 8394676 (Version 2)
Quarter: 2012Q4

REPORT INFORMATION
  Report Type: 
  Country: DK (occurrence: DK)
  Receive Date: 20120207
  Receipt Date: 20121106
  Transmission Date: 20130627
  Serious: Yes (Hospitalization, Other)
  Sender: FDA-Public Use
  Company Number: DK-PFIZER INC-9829027

PATIENT
  Age: 49 Year
  Sex: Female
  Weight: 84 kg

DRUGS (5)
  1. SERTRALINE HCL [Suspect]
     Indication: ANXIETY
     Dosage: 50mg daily
     Route: 048
     Dates: start: 199401, end: 19980812
  2. SERTRALINE HCL [Suspect]
     Indication: DEPRESSION
  3. ALPRAZOLAM [Concomitant]
     Dosage: UNK
     Route: 048
     Dates: start: 199601
  4. PIVAMPICILLIN [Concomitant]
     Dosage: UNK
     Route: 048
     Dates: start: 19980804, end: 19980810
  5. IBUPROFEN [Concomitant]
     Dosage: UNK
     Route: 048

REACTIONS (2)
  - Urinary retention [Recovered/Resolved]
  - Diabetes insipidus [Recovered/Resolved]
